FAERS Safety Report 8179851-6 (Version None)
Quarter: 2012Q1

REPORT INFORMATION
  Report Type: 
  Country: None (occurrence: None)
  Receive Date: 20120229
  Receipt Date: 20120221
  Transmission Date: 20120608
  Serious: Yes (Other)
  Sender: FDA-Public Use
  Company Number: TPA2012A00879

PATIENT
  Age: 71 Year
  Sex: Female
  Weight: 75.7507 kg

DRUGS (4)
  1. CRESTOR [Concomitant]
  2. METFORMIN HCL [Concomitant]
  3. BYETTA [Concomitant]
  4. ACTOS [Suspect]
     Indication: TYPE 2 DIABETES MELLITUS
     Dosage: 45 MG, 1 IN 1 D, PER ORAL
     Route: 048
     Dates: start: 20080418, end: 20120215

REACTIONS (9)
  - POLLAKIURIA [None]
  - HAEMATURIA [None]
  - PELVIC MASS [None]
  - MICTURITION URGENCY [None]
  - PAIN [None]
  - BLADDER MASS [None]
  - ABDOMINAL DISCOMFORT [None]
  - DYSURIA [None]
  - BLADDER CANCER [None]
